FAERS Safety Report 4954338-X (Version None)
Quarter: 2006Q1

REPORT INFORMATION
  Report Type: 
  Country: None (occurrence: None)
  Receive Date: 20060327
  Receipt Date: 20051123
  Transmission Date: 20060701
  Serious: Yes (Death, Hospitalization)
  Sender: FDA-Public Use
  Company Number: US-MERCK-0511USA04013

PATIENT
  Age: 76 Year
  Sex: Female
  Weight: 73 kg

DRUGS (7)
  1. VIOXX [Suspect]
     Indication: OSTEOARTHRITIS
     Route: 048
     Dates: start: 20020506, end: 20030425
  2. VIOXX [Suspect]
     Route: 048
     Dates: start: 20020506, end: 20030425
  3. TYLENOL [Concomitant]
     Route: 065
  4. DILTIAZEM HYDROCHLORIDE [Concomitant]
     Indication: HYPERTENSION
     Route: 065
     Dates: start: 20010201, end: 20030401
  5. VALIUM [Concomitant]
     Indication: ANALGESIC EFFECT
     Route: 065
     Dates: end: 20030401
  6. ASPIRIN [Concomitant]
     Indication: PROPHYLAXIS
     Route: 065
     Dates: start: 19940101, end: 20030401
  7. ASPIRIN [Concomitant]
     Route: 065
     Dates: start: 19940101, end: 20030401

REACTIONS (2)
  - DEPRESSION [None]
  - MYOCARDIAL INFARCTION [None]
